FAERS Safety Report 26023469 (Version 1)
Quarter: 2025Q4

REPORT INFORMATION
  Report Type: Spontaneous
  Country: US (occurrence: US)
  Receive Date: 20251111
  Receipt Date: 20251111
  Transmission Date: 20260118
  Serious: No
  Sender: ELI LILLY AND COMPANY
  Company Number: US-ELI_LILLY_AND_COMPANY-US202510035585

PATIENT
  Age: 75 Year
  Sex: Female

DRUGS (1)
  1. ZEPBOUND [Suspect]
     Active Substance: TIRZEPATIDE
     Indication: Weight control
     Dosage: 2.5 MG, UNKNOWN
     Route: 058
     Dates: start: 20251023

REACTIONS (12)
  - Discomfort [Unknown]
  - Somnolence [Unknown]
  - Renal pain [Unknown]
  - Hepatic pain [Unknown]
  - Flank pain [Unknown]
  - Injection site pain [Unknown]
  - Vomiting [Unknown]
  - Constipation [Unknown]
  - Fatigue [Unknown]
  - Injection site erythema [Unknown]
  - Nausea [Unknown]
  - Abdominal pain upper [Unknown]

NARRATIVE: CASE EVENT DATE: 20251028
